FAERS Safety Report 8840576 (Version 1)
Quarter: 2012Q4

REPORT INFORMATION
  Report Type: Report from Study
  Country: GB (occurrence: GB)
  Receive Date: 20121015
  Receipt Date: 20121015
  Transmission Date: 20130627
  Serious: Yes (Hospitalization)
  Sender: FDA-Public Use
  Company Number: GB-BAXTER-2012BAX019285

PATIENT
  Age: 58 Year
  Sex: Female
  Weight: 88.5 kg

DRUGS (10)
  1. CYCLOPHOSPHAMIDE [Suspect]
     Indication: MALIGNANT BREAST NEOPLASM
     Dosage: 500-600 mg/m2
     Route: 042
     Dates: start: 20120706
  2. PERTUZUMAB [Suspect]
     Indication: MALIGNANT BREAST NEOPLASM
     Route: 042
     Dates: start: 20120816
  3. TRASTUZUMAB [Suspect]
     Indication: MALIGNANT BREAST NEOPLASM
     Route: 042
     Dates: start: 20120816
  4. 5-FLUOROURACIL [Suspect]
     Indication: MALIGNANT BREAST NEOPLASM
     Dosage: 500-600 mg/m2
     Route: 042
     Dates: start: 20120706
  5. DOCETAXEL [Suspect]
     Indication: MALIGNANT BREAST NEOPLASM
     Route: 042
     Dates: start: 20120817
  6. EPIRUBICIN [Suspect]
     Indication: MALIGNANT BREAST NEOPLASM
     Dosage: 90-120 mg/m2
     Route: 042
     Dates: start: 20120706
  7. APREPITANT [Concomitant]
     Indication: DRUG USE FOR UNKNOWN INDICATION
     Route: 065
     Dates: start: 20120707, end: 20120709
  8. RATIOGRASTIM [Concomitant]
     Indication: DRUG USE FOR UNKNOWN INDICATION
     Dosage: 480 ug
     Route: 065
     Dates: start: 20120706, end: 20120712
  9. FILGRASTIM [Concomitant]
     Indication: DRUG USE FOR UNKNOWN INDICATION
     Route: 065
     Dates: start: 20120818, end: 20120824
  10. DEXAMETHASONE [Concomitant]
     Indication: DRUG USE FOR UNKNOWN INDICATION
     Route: 065
     Dates: start: 20120818, end: 20120822

REACTIONS (3)
  - Infusion site pain [Recovered/Resolved]
  - Infusion site infection [Recovered/Resolved]
  - Febrile neutropenia [Recovered/Resolved]
